FAERS Safety Report 5498243-1 (Version None)
Quarter: 2007Q4

REPORT INFORMATION
  Report Type: 
  Country: None (occurrence: None)
  Receive Date: 20071025
  Receipt Date: 20070417
  Transmission Date: 20080405
  Serious: No
  Sender: FDA-Public Use
  Company Number: A0647662A

PATIENT
  Age: 53 Year
  Sex: Female

DRUGS (3)
  1. ADVAIR DISKUS 100/50 [Suspect]
     Indication: ASTHMA
     Dosage: 1PUFF PER DAY
     Route: 055
     Dates: start: 20020101
  2. HORMONE REPLACEMENT [Concomitant]
  3. IBUPROFEN [Concomitant]

REACTIONS (7)
  - EATING DISORDER [None]
  - GINGIVAL SWELLING [None]
  - LYMPHADENOPATHY [None]
  - MOUTH ULCERATION [None]
  - PAIN [None]
  - PHARYNGEAL ULCERATION [None]
  - SWOLLEN TONGUE [None]
